FAERS Safety Report 10235575 (Version 4)
Quarter: 2014Q3

REPORT INFORMATION
  Report Type: Report from Study
  Country: CO (occurrence: None)
  Receive Date: 20140611
  Receipt Date: 20140804
  Transmission Date: 20150326
  Serious: Yes (Other)
  Sender: FDA-Public Use
  Company Number: 2014-19665

PATIENT
  Age: 73 Year
  Sex: Male

DRUGS (5)
  1. EYLEA [Suspect]
     Active Substance: AFLIBERCEPT
     Indication: EYE HAEMORRHAGE
     Route: 031
     Dates: start: 20140227, end: 20140227
  2. LOSARTAN (LOSARTAN) [Concomitant]
     Active Substance: LOSARTAN
  3. METFORMIN [Concomitant]
     Active Substance: METFORMIN HYDROCHLORIDE
  4. EYLEA [Suspect]
     Active Substance: AFLIBERCEPT
     Indication: DIABETIC RETINOPATHY
     Route: 031
     Dates: start: 20140227, end: 20140227
  5. GLIBENCLAMID (GLIBENCLAMIDE) [Concomitant]

REACTIONS (3)
  - Off label use [None]
  - Diabetic retinopathy [None]
  - Medication error [None]

NARRATIVE: CASE EVENT DATE: 20140227
